FAERS Safety Report 14996614 (Version 2)
Quarter: 2018Q3

REPORT INFORMATION
  Report Type: Spontaneous
  Country: US (occurrence: US)
  Receive Date: 20180611
  Receipt Date: 20180706
  Transmission Date: 20181010
  Serious: Yes (Hospitalization)
  Sender: FDA-Public Use
  Company Number: US-ELI_LILLY_AND_COMPANY-US201805014491

PATIENT
  Age: 64 Year
  Sex: Male

DRUGS (2)
  1. LEVEMIR [Suspect]
     Active Substance: INSULIN DETEMIR
     Indication: TYPE 2 DIABETES MELLITUS
     Dosage: UNK, PRN
     Route: 058
     Dates: start: 201801, end: 201803
  2. HUMALOG [Suspect]
     Active Substance: INSULIN LISPRO
     Indication: TYPE 2 DIABETES MELLITUS
     Dosage: 8 U, PRIOR TO MEALS, PRN
     Route: 058
     Dates: start: 201801, end: 201803

REACTIONS (3)
  - Drug hypersensitivity [Recovered/Resolved]
  - Sleep disorder due to general medical condition, insomnia type [Unknown]
  - Anxiety [Unknown]

NARRATIVE: CASE EVENT DATE: 201801
